FAERS Safety Report 14630905 (Version 1)
Quarter: 2018Q1

REPORT INFORMATION
  Report Type: Spontaneous
  Country: FR (occurrence: FR)
  Receive Date: 20180313
  Receipt Date: 20180313
  Transmission Date: 20180509
  Serious: Yes (Hospitalization)
  Sender: FDA-Public Use
  Company Number: FR-ABBVIE-18P-056-2286340-00

PATIENT
  Age: 46 Year
  Sex: Female

DRUGS (2)
  1. DEPAKINE [Suspect]
     Active Substance: VALPROATE SODIUM
     Indication: SUICIDE ATTEMPT
     Route: 048
     Dates: start: 20171120, end: 20171120
  2. LOXAPAC [Suspect]
     Active Substance: LOXAPINE
     Indication: SUICIDE ATTEMPT
     Route: 048
     Dates: start: 20171120, end: 20171120

REACTIONS (2)
  - Bundle branch block right [Recovered/Resolved]
  - Somnolence [Recovered/Resolved]

NARRATIVE: CASE EVENT DATE: 20171120
